FAERS Safety Report 13781492 (Version 1)
Quarter: 2017Q3

REPORT INFORMATION
  Report Type: Spontaneous
  Country: US (occurrence: US)
  Receive Date: 20170724
  Receipt Date: 20170724
  Transmission Date: 20171127
  Serious: Yes (Hospitalization, Other)
  Sender: FDA-Public Use
  Company Number: US-SUN PHARMACEUTICAL INDUSTRIES LTD-2017US-138703

PATIENT
  Age: 29 Year
  Sex: Male

DRUGS (2)
  1. NALTREXONE [Suspect]
     Active Substance: NALTREXONE
     Indication: ALCOHOLISM
     Dosage: 50 MG, DAILY
     Route: 065
  2. CHLORDIAZEPOXIDE. [Concomitant]
     Active Substance: CHLORDIAZEPOXIDE
     Indication: ALCOHOLISM
     Dosage: UNK
     Route: 065

REACTIONS (1)
  - Pancreatitis acute [Unknown]
